FAERS Safety Report 5814759-X (Version None)
Quarter: 2008Q3

REPORT INFORMATION
  Report Type: 
  Country: None (occurrence: None)
  Receive Date: 20080715
  Receipt Date: 20080703
  Transmission Date: 20090109
  Serious: No
  Sender: FDA-Public Use
  Company Number: 2008-180270-NL

PATIENT
  Age: 37 Year
  Sex: Female

DRUGS (1)
  1. ETONOGESTREL [Suspect]
     Dosage: DF
     Dates: start: 20071101, end: 20080601

REACTIONS (2)
  - HEPATIC STEATOSIS [None]
  - HEPATOMEGALY [None]
